FAERS Safety Report 6343990-2 (Version None)
Quarter: 2009Q3

REPORT INFORMATION
  Report Type: 
  Country: None (occurrence: None)
  Receive Date: 20090908
  Receipt Date: 20090827
  Transmission Date: 20100115
  Serious: Yes (Other)
  Sender: FDA-Public Use
  Company Number: JP-ASTRAZENECA-2009SE11128

PATIENT
  Age: 66 Year
  Sex: Male

DRUGS (7)
  1. MEROPEN [Suspect]
     Indication: ACUTE RESPIRATORY DISTRESS SYNDROME
     Route: 041
  2. PHENYTOIN [Suspect]
     Indication: CONVULSION
     Route: 048
  3. DIAZEPAM [Concomitant]
     Indication: CONVULSION
  4. PHENOBARBITAL [Concomitant]
     Indication: CONVULSION
  5. ABPC/SBT [Concomitant]
     Indication: PNEUMONIA ASPIRATION
  6. SIVELESTAT SODIUM [Concomitant]
     Indication: ACUTE RESPIRATORY DISTRESS SYNDROME
  7. STEROID-PULSE THERAPY [Concomitant]
     Indication: ACUTE RESPIRATORY DISTRESS SYNDROME

REACTIONS (2)
  - INTERSTITIAL LUNG DISEASE [None]
  - PULMONARY FIBROSIS [None]
